FAERS Safety Report 8123097-4 (Version None)
Quarter: 2012Q1

REPORT INFORMATION
  Report Type: 
  Country: None (occurrence: None)
  Receive Date: 20120208
  Receipt Date: 20120206
  Transmission Date: 20120608
  Serious: Yes (Other)
  Sender: FDA-Public Use
  Company Number: US-PFIZER INC-2012027844

PATIENT
  Sex: Female
  Weight: 63.5 kg

DRUGS (17)
  1. LYRICA [Suspect]
     Dosage: 150 MG, 2X/DAY
     Route: 048
     Dates: start: 20110101, end: 20110101
  2. LEVOXYL [Concomitant]
     Indication: THYROID DISORDER
     Dosage: 75 MG, DAILY
  3. VITAMIN D [Concomitant]
     Dosage: UNK
  4. ACETYLSALICYLIC ACID [Concomitant]
     Indication: ANTICOAGULANT THERAPY
     Dosage: 81 MG, DAILY
  5. ACCUPRIL [Concomitant]
     Indication: DYSPNOEA
     Dosage: UNK
  6. NEURONTIN [Suspect]
     Dosage: 50 MG, DAILY
  7. CYMBALTA [Concomitant]
     Dosage: 30 MG, DAILY
  8. LUNESTA [Concomitant]
     Indication: INSOMNIA
     Dosage: UNK, AS NEEDED
  9. TRILIPIX [Concomitant]
     Dosage: UNK
  10. ACCUPRIL [Concomitant]
     Indication: ANTICOAGULANT THERAPY
  11. NEURONTIN [Suspect]
     Dosage: 300 MG, DAILY
     Dates: end: 20110101
  12. TRILIPIX [Concomitant]
     Indication: BLOOD CHOLESTEROL INCREASED
     Dosage: 135 MG, DAILY
  13. NEURONTIN [Suspect]
     Indication: NEUROPATHY PERIPHERAL
     Dosage: 25 MG, DAILY
  14. VITAMIN B-12 [Concomitant]
     Indication: VITAMIN B12 DEFICIENCY
     Dosage: UNK
  15. BONIVA [Concomitant]
     Indication: OSTEOPOROSIS
     Dosage: 150 MG, MONTHLY
  16. LYRICA [Suspect]
     Indication: NEUROPATHY PERIPHERAL
     Dosage: 50 MG, 2X/DAY
     Route: 048
     Dates: start: 20110101, end: 20110101
  17. LYRICA [Suspect]
     Dosage: 200 MG, 2X/DAY
     Route: 048
     Dates: start: 20110101

REACTIONS (7)
  - DYSPHEMIA [None]
  - GAIT DISTURBANCE [None]
  - HYPOTENSION [None]
  - DIZZINESS [None]
  - DRUG INEFFECTIVE [None]
  - DRUG INTOLERANCE [None]
  - DYSARTHRIA [None]
